FAERS Safety Report 7712994-7 (Version None)
Quarter: 2011Q3

REPORT INFORMATION
  Report Type: 
  Country: None (occurrence: None)
  Receive Date: 20110826
  Receipt Date: 20110822
  Transmission Date: 20111222
  Serious: Yes (Hospitalization)
  Sender: FDA-Public Use
  Company Number: US-JNJFOC-20110805302

PATIENT
  Sex: Male
  Weight: 40.2 kg

DRUGS (5)
  1. BUDESONIDE [Concomitant]
  2. INFLIXIMAB, RECOMBINANT [Suspect]
     Indication: INFLAMMATORY BOWEL DISEASE
     Route: 042
     Dates: start: 20060907
  3. HUMIRA [Concomitant]
     Dates: start: 20081203
  4. PREDNISONE [Concomitant]
  5. INFLIXIMAB, RECOMBINANT [Suspect]
     Route: 042
     Dates: start: 20080411

REACTIONS (1)
  - PYREXIA [None]
